FAERS Safety Report 16052370 (Version 1)
Quarter: 2019Q1

REPORT INFORMATION
  Report Type: Spontaneous
  Country: US (occurrence: US)
  Receive Date: 20190308
  Receipt Date: 20190308
  Transmission Date: 20190418
  Serious: No
  Sender: FDA-Public Use
  Company Number: US-009507513-1903USA003674

PATIENT
  Sex: Male

DRUGS (2)
  1. EMEND [Suspect]
     Active Substance: APREPITANT
     Indication: PROCEDURAL NAUSEA
  2. EMEND [Suspect]
     Active Substance: APREPITANT
     Indication: PROCEDURAL VOMITING
     Dosage: UNK
     Route: 042

REACTIONS (1)
  - Off label use [Unknown]
